FAERS Safety Report 17096140 (Version 2)
Quarter: 2020Q2

REPORT INFORMATION
  Report Type: Spontaneous
  Country: CN (occurrence: CN)
  Receive Date: 20191202
  Receipt Date: 20200402
  Transmission Date: 20200713
  Serious: Yes (Other)
  Sender: FDA-Public Use
  Company Number: CN-ROCHE-2480212

PATIENT
  Age: 62 Year
  Sex: Male
  Weight: 57 kg

DRUGS (10)
  1. RALTITREXED [Concomitant]
     Active Substance: RALTITREXED
     Route: 065
     Dates: start: 20190507
  2. OXALIPLATIN. [Concomitant]
     Active Substance: OXALIPLATIN
     Route: 065
     Dates: start: 20190318
  3. OXALIPLATIN. [Concomitant]
     Active Substance: OXALIPLATIN
     Route: 065
     Dates: start: 20190507
  4. CETUXIMAB. [Concomitant]
     Active Substance: CETUXIMAB
     Indication: ADENOCARCINOMA OF COLON
     Route: 041
     Dates: start: 20190318
  5. OXALIPLATIN. [Concomitant]
     Active Substance: OXALIPLATIN
     Indication: ADENOCARCINOMA OF COLON
     Route: 041
     Dates: start: 20180131, end: 20180601
  6. REGORAFENIB. [Concomitant]
     Active Substance: REGORAFENIB
     Indication: ADENOCARCINOMA OF COLON
     Route: 048
     Dates: start: 20190201
  7. XELODA [Suspect]
     Active Substance: CAPECITABINE
     Indication: ADENOCARCINOMA OF COLON
     Route: 048
     Dates: start: 20180131, end: 20180601
  8. CETUXIMAB. [Concomitant]
     Active Substance: CETUXIMAB
     Route: 041
     Dates: start: 20190507
  9. RALTITREXED [Concomitant]
     Active Substance: RALTITREXED
     Indication: ADENOCARCINOMA OF COLON
     Route: 065
     Dates: start: 20190318
  10. FRUQUINTINIB. [Concomitant]
     Active Substance: FRUQUINTINIB
     Indication: ADENOCARCINOMA OF COLON
     Route: 065
     Dates: start: 20190704

REACTIONS (5)
  - Gastrointestinal disorder [Unknown]
  - Haematotoxicity [Unknown]
  - Adenomyosis [Unknown]
  - Cholecystitis chronic [Unknown]
  - Neurotoxicity [Unknown]
